FAERS Safety Report 7682029-3 (Version None)
Quarter: 2011Q3

REPORT INFORMATION
  Report Type: 
  Country: None (occurrence: None)
  Receive Date: 20110815
  Receipt Date: 20110802
  Transmission Date: 20111222
  Serious: Yes (Hospitalization, Other)
  Sender: FDA-Public Use
  Company Number: US-ELI_LILLY_AND_COMPANY-US201012005184

PATIENT
  Sex: Female
  Weight: 50 kg

DRUGS (17)
  1. CELEXA [Concomitant]
     Dosage: 40 MG, 2/D
  2. KLOR-CON [Concomitant]
     Dosage: 10-10 MEQ, UNK
  3. LASIX [Concomitant]
     Dosage: 40 MG, DAILY (1/D) (1/2 TO 1 TABLET DAILY)
  4. POTASSIUM                          /00031402/ [Concomitant]
     Dosage: 10 MEQ, UNK
  5. FENTANYL [Concomitant]
  6. PERCOCET [Concomitant]
     Dosage: EVERY 4 HRS
  7. CIPROFLOXACIN [Concomitant]
     Dosage: UNK, UNKNOWN
     Route: 065
  8. VOLTAREN                                /SCH/ [Concomitant]
     Dosage: 75 MG, DAILY (1/D)
  9. FORTEO [Suspect]
     Dosage: 20 UG, QD
     Route: 058
  10. FORTEO [Suspect]
     Indication: OSTEOPOROSIS
     Dosage: 20 UG, DAILY (1/D)
     Route: 058
     Dates: start: 20100801, end: 20100910
  11. COZAAR [Concomitant]
  12. SYNTHROID [Concomitant]
     Dosage: 25 MG, DAILY (1/D)
  13. MAXZIDE [Concomitant]
     Dosage: 25 MG, DAILY (1/D)
  14. FORTEO [Suspect]
     Dosage: 20 UG, QD
     Route: 058
  15. MORPHINE SULFATE [Concomitant]
     Dosage: 100 MG, EVERY 8 HRS
  16. LORTAB [Concomitant]
     Dosage: 10.5 MG, AS NEEDED
  17. PROMETHAZINE [Concomitant]
     Indication: NAUSEA
     Dosage: 25 MG, AS NEEDED

REACTIONS (10)
  - HYPERSENSITIVITY [None]
  - RENAL CELL CARCINOMA RECURRENT [None]
  - RENAL FAILURE [None]
  - CONTUSION [None]
  - FIBROMYALGIA [None]
  - OSTEOARTHRITIS [None]
  - DRUG DOSE OMISSION [None]
  - PNEUMONIA [None]
  - BLOOD IRON DECREASED [None]
  - RASH MACULAR [None]
